FAERS Safety Report 10568508 (Version 2)
Quarter: 2014Q4

REPORT INFORMATION
  Report Type: Spontaneous
  Country: US (occurrence: US)
  Receive Date: 20141106
  Receipt Date: 20141106
  Transmission Date: 20150529
  Serious: Yes (Hospitalization)
  Sender: FDA-Public Use
  Company Number: US-ACTELION-A-US2014-106376

PATIENT
  Age: 53 Year
  Sex: Female

DRUGS (2)
  1. VELETRI [Suspect]
     Active Substance: EPOPROSTENOL
     Indication: COR PULMONALE CHRONIC
     Dosage: 17 NG/KG, PER MIN
     Route: 041
     Dates: start: 20120706
  2. REVATIO [Concomitant]
     Active Substance: SILDENAFIL CITRATE

REACTIONS (5)
  - Gastric infection [Unknown]
  - Nausea [Unknown]
  - Eye infection [Unknown]
  - Urinary tract infection [Unknown]
  - Vomiting [Unknown]
